FAERS Safety Report 23488848 (Version 2)
Quarter: 2024Q1

REPORT INFORMATION
  Report Type: Spontaneous
  Country: JP (occurrence: JP)
  Receive Date: 20240206
  Receipt Date: 20240219
  Transmission Date: 20240410
  Serious: Yes (Hospitalization)
  Sender: FDA-Public Use
  Company Number: JP-ABBVIE-5503248

PATIENT
  Age: 79 Year
  Sex: Male
  Weight: 52 kg

DRUGS (4)
  1. RINVOQ [Suspect]
     Active Substance: UPADACITINIB
     Indication: Dermatitis atopic
     Dosage: FORM STRENGTH: 15 MILLIGRAM
     Route: 048
     Dates: start: 20220725
  2. FEBUXOSTAT EG [Concomitant]
     Indication: Hyperuricaemia
     Dosage: 20 MILLIGRAM
     Route: 048
  3. LINAGLIPTIN [Concomitant]
     Active Substance: LINAGLIPTIN
     Indication: Steroid diabetes
     Dosage: 5 MILLIGRAM
     Route: 048
  4. BIFIDOBACTERIUM LONGUM [Concomitant]
     Active Substance: BIFIDOBACTERIUM LONGUM
     Indication: Gastroenteritis
     Dosage: TIME INTERVAL: 0.33333333 DAYS: 9 TABLET
     Route: 048

REACTIONS (2)
  - Metastases to central nervous system [Not Recovered/Not Resolved]
  - Lung neoplasm malignant [Not Recovered/Not Resolved]

NARRATIVE: CASE EVENT DATE: 20230406
